FAERS Safety Report 17237132 (Version 1)
Quarter: 2019Q4

REPORT INFORMATION
  Report Type: Spontaneous
  Country: US (occurrence: US)
  Receive Date: 20191211
  Receipt Date: 20191211
  Transmission Date: 20200122
  Serious: Yes (Hospitalization)
  Sender: FDA-Public Use
  Company Number: None

PATIENT
  Age: 83 Year
  Sex: Female

DRUGS (1)
  1. PROLIA [Suspect]
     Active Substance: DENOSUMAB
     Indication: SENILE OSTEOPOROSIS
     Route: 058
     Dates: start: 20171121

REACTIONS (6)
  - Cardiac failure [None]
  - Dysphagia [None]
  - Vomiting [None]
  - Dyspnoea [None]
  - Hypophagia [None]
  - Gastrointestinal disorder [None]

NARRATIVE: CASE EVENT DATE: 20191108
